FAERS Safety Report 9765097 (Version 1)
Quarter: 2013Q4

REPORT INFORMATION
  Report Type: Spontaneous
  Country: US (occurrence: None)
  Receive Date: 20131216
  Receipt Date: 20131216
  Transmission Date: 20140711
  Serious: No
  Sender: FDA-Public Use
  Company Number: None

PATIENT
  Age: 27 Year
  Sex: Female
  Weight: 72.58 kg

DRUGS (1)
  1. PARAGUARD [Suspect]
     Indication: CONTRACEPTION
     Dates: start: 20121122

REACTIONS (1)
  - Hypertrichosis [None]
